FAERS Safety Report 15509051 (Version 2)
Quarter: 2018Q4

REPORT INFORMATION
  Report Type: Spontaneous
  Country: US (occurrence: US)
  Receive Date: 20181016
  Receipt Date: 20181108
  Transmission Date: 20190205
  Serious: Yes (Hospitalization)
  Sender: FDA-Public Use
  Company Number: US-VIFOR (INTERNATIONAL) INC.-VIT-2018-10087

PATIENT
  Age: 46 Year
  Sex: Male

DRUGS (18)
  1. MINOXIDIL. [Concomitant]
     Active Substance: MINOXIDIL
  2. ENALAPRIL [Concomitant]
     Active Substance: ENALAPRIL
  3. SEVELAMER [Concomitant]
     Active Substance: SEVELAMER
  4. AMLODIPINE [Concomitant]
     Active Substance: AMLODIPINE BESYLATE
  5. RENVELA [Concomitant]
     Active Substance: SEVELAMER CARBONATE
  6. RENAVITE [Concomitant]
     Active Substance: ASCORBIC ACID\BIOTIN\CALCIUM PANTOTHENATE\CYANOCOBALAMIN\FOLIC ACID\NIACINAMIDE\PYRIDOXINE HYDROCHLORIDE\RIBOFLAVIN\THIAMINE MONONITRATE
  7. ATORVASTATIN [Concomitant]
     Active Substance: ATORVASTATIN
  8. GABAPENTIN. [Concomitant]
     Active Substance: GABAPENTIN
  9. WARFARIN [Concomitant]
     Active Substance: WARFARIN
  10. ZEPATIER [Concomitant]
     Active Substance: ELBASVIR\GRAZOPREVIR
  11. HYDROCODONE BITARTRATE AND ACETAMINOPHEN [Concomitant]
     Active Substance: ACETAMINOPHEN\HYDROCODONE BITARTRATE
  12. NIFEDIPINE. [Concomitant]
     Active Substance: NIFEDIPINE
  13. HYDRALAZINE [Concomitant]
     Active Substance: HYDRALAZINE HYDROCHLORIDE
  14. VELTASSA [Suspect]
     Active Substance: PATIROMER
     Indication: HYPERKALAEMIA
     Route: 048
     Dates: start: 20170922
  15. SENSIPAR [Concomitant]
     Active Substance: CINACALCET HYDROCHLORIDE
  16. ASPIRIN. [Concomitant]
     Active Substance: ASPIRIN
  17. CLONIDINE. [Concomitant]
     Active Substance: CLONIDINE
  18. METOPROLOL. [Concomitant]
     Active Substance: METOPROLOL

REACTIONS (2)
  - Hypertension [Not Recovered/Not Resolved]
  - Blood potassium increased [Unknown]

NARRATIVE: CASE EVENT DATE: 20181010
